FAERS Safety Report 22170717 (Version 3)
Quarter: 2023Q2

REPORT INFORMATION
  Report Type: Spontaneous
  Country: US (occurrence: None)
  Receive Date: 20230404
  Receipt Date: 20230426
  Transmission Date: 20230722
  Serious: Yes (Hospitalization, Other)
  Sender: FDA-Public Use
  Company Number: US-ROCHE-3323063

PATIENT
  Age: 50 Year
  Sex: Male
  Weight: 83.082 kg

DRUGS (5)
  1. ALECENSA [Suspect]
     Active Substance: ALECTINIB HYDROCHLORIDE
     Indication: Lung neoplasm malignant
     Route: 048
     Dates: start: 20230307
  2. AMLODIPINE [Concomitant]
     Active Substance: AMLODIPINE BESYLATE
     Indication: Hypertension
     Route: 048
     Dates: start: 20230123
  3. ALBUTEROL [Concomitant]
     Active Substance: ALBUTEROL
     Indication: Cough
     Dosage: ROUTE:INHALATION,
     Dates: start: 20221205
  4. GABAPENTIN [Concomitant]
     Active Substance: GABAPENTIN
     Dosage: 300 MG
     Dates: start: 20230210
  5. LEXAPRO [Concomitant]
     Active Substance: ESCITALOPRAM OXALATE
     Dates: start: 20230123

REACTIONS (2)
  - Cerebrovascular accident [Recovered/Resolved]
  - Spinal fracture [Unknown]

NARRATIVE: CASE EVENT DATE: 20230310
